FAERS Safety Report 11656681 (Version 1)
Quarter: 2015Q4

REPORT INFORMATION
  Report Type: Spontaneous
  Country: US (occurrence: US)
  Receive Date: 20151023
  Receipt Date: 20151023
  Transmission Date: 20160304
  Serious: Yes (Hospitalization, Other)
  Sender: FDA-Public Use
  Company Number: US-GLAXOSMITHKLINE-US2015GSK151084

PATIENT
  Age: 74 Year
  Sex: Female
  Weight: 84 kg

DRUGS (10)
  1. TOLTERODINE [Suspect]
     Active Substance: TOLTERODINE
     Indication: INCONTINENCE
  2. WARFARIN [Concomitant]
     Active Substance: WARFARIN
  3. DETROL [Suspect]
     Active Substance: TOLTERODINE TARTRATE
     Indication: INCONTINENCE
     Dosage: 2 MG, BID
     Route: 048
  4. ATORVASTATIN [Concomitant]
     Active Substance: ATORVASTATIN
  5. FUROSEMIDE. [Concomitant]
     Active Substance: FUROSEMIDE
  6. KLOR-CON [Concomitant]
     Active Substance: POTASSIUM CHLORIDE
  7. HYDROCODONE BITARTRATE AND ACETAMINOPHEN [Concomitant]
     Active Substance: ACETAMINOPHEN\HYDROCODONE BITARTRATE
  8. COREG [Suspect]
     Active Substance: CARVEDILOL
     Indication: CARDIAC DISORDER
     Dosage: UNK
     Dates: start: 20150423
  9. OXYCONTIN [Suspect]
     Active Substance: OXYCODONE HYDROCHLORIDE
     Indication: PAIN
  10. OXYCODONE [Suspect]
     Active Substance: OXYCODONE
     Indication: PAIN

REACTIONS (18)
  - Hospitalisation [Unknown]
  - Rib fracture [Unknown]
  - Cyanosis [Unknown]
  - Aortic valve replacement [Recovered/Resolved]
  - Blood pressure decreased [Unknown]
  - Oxygen saturation decreased [Unknown]
  - Rehabilitation therapy [Unknown]
  - Cardiac operation [Recovered/Resolved]
  - Drug ineffective [Unknown]
  - Urinary incontinence [Unknown]
  - Lower limb fracture [Unknown]
  - Pain [Unknown]
  - Road traffic accident [Recovering/Resolving]
  - Loss of consciousness [Unknown]
  - Cardiac murmur [Unknown]
  - Living in residential institution [Unknown]
  - Cardiac disorder [Unknown]
  - Overdose [Unknown]

NARRATIVE: CASE EVENT DATE: 20150205
